FAERS Safety Report 23191526 (Version 3)
Quarter: 2024Q1

REPORT INFORMATION
  Report Type: Spontaneous
  Country: US (occurrence: US)
  Receive Date: 20231116
  Receipt Date: 20240110
  Transmission Date: 20240410
  Serious: No
  Sender: FDA-Public Use
  Company Number: US-PFIZER INC-202300355605

PATIENT
  Age: 30 Year
  Sex: Female

DRUGS (1)
  1. DEPO-PROVERA [Suspect]
     Active Substance: MEDROXYPROGESTERONE ACETATE
     Indication: Contraception
     Dosage: UNK (104 MILLIGRAMS OVER 0.65 ML SHOT.)

REACTIONS (4)
  - Drug dose omission by device [Unknown]
  - Product administration error [Unknown]
  - Syringe issue [Unknown]
  - Device malfunction [Unknown]
